FAERS Safety Report 9195451 (Version 1)
Quarter: 2013Q1

REPORT INFORMATION
  Report Type: Spontaneous
  Country: US (occurrence: US)
  Receive Date: 20130328
  Receipt Date: 20130328
  Transmission Date: 20140127
  Serious: Yes (Other)
  Sender: FDA-Public Use
  Company Number: US-AMGEN-USASP2013020330

PATIENT
  Age: 48 Year
  Sex: Male

DRUGS (2)
  1. NEUPOGEN [Suspect]
     Indication: PRODUCT USED FOR UNKNOWN INDICATION
     Dosage: 3CC^S PER DOSE
     Dates: start: 20130317
  2. CLARITIN-D [Concomitant]
     Indication: SINUS DISORDER
     Dosage: UNK

REACTIONS (5)
  - Blood pressure increased [Unknown]
  - Heart rate increased [Unknown]
  - Insomnia [Recovered/Resolved]
  - Chest pain [Not Recovered/Not Resolved]
  - Arthralgia [Not Recovered/Not Resolved]
